FAERS Safety Report 25104633 (Version 1)
Quarter: 2025Q1

REPORT INFORMATION
  Report Type: Spontaneous
  Country: US (occurrence: None)
  Receive Date: 20250320
  Receipt Date: 20250320
  Transmission Date: 20250409
  Serious: Yes (Other)
  Sender: FDA-CTU
  Company Number: None

PATIENT
  Sex: Female

DRUGS (5)
  1. SAXENDA [Suspect]
     Active Substance: LIRAGLUTIDE
     Indication: Obesity
     Dosage: FREQUENCY : DAILY;?
     Route: 058
     Dates: start: 20241010
  2. DELSYM SUS 30MG/5ML [Concomitant]
  3. DICLOFENAC TAB75MG DR [Concomitant]
  4. NAPROXEN [Concomitant]
     Active Substance: NAPROXEN
  5. TERBINAFINE TAB 2soMG [Concomitant]

REACTIONS (1)
  - Surgery [None]
